FAERS Safety Report 8630735 (Version 4)
Quarter: 2014Q4

REPORT INFORMATION
  Report Type: Spontaneous
  Country: US (occurrence: US)
  Receive Date: 20120622
  Receipt Date: 20141030
  Transmission Date: 20150529
  Serious: Yes (Death, Hospitalization, Other)
  Sender: FDA-Public Use
  Company Number: US-GLAXOSMITHKLINE-A0966876A

PATIENT
  Age: 60 Year
  Sex: Male
  Weight: 118.6 kg

DRUGS (2)
  1. AVANDIA [Suspect]
     Active Substance: ROSIGLITAZONE MALEATE
     Indication: DIABETES MELLITUS
     Dosage: 4 MG, UNK
     Route: 048
     Dates: start: 1999, end: 2007
  2. AVANDARYL [Suspect]
     Active Substance: GLIMEPIRIDE\ROSIGLITAZONE MALEATE
     Indication: DIABETES MELLITUS
     Route: 048
     Dates: start: 20060414, end: 20071206

REACTIONS (10)
  - Myocardial infarction [Unknown]
  - Cardiogenic shock [Unknown]
  - Oedema [Unknown]
  - Pulmonary oedema [Unknown]
  - Atrioventricular block first degree [Unknown]
  - Arteriosclerosis coronary artery [Unknown]
  - Cardiac failure congestive [Unknown]
  - Atrial flutter [Unknown]
  - Death [Fatal]
  - Atrial fibrillation [Unknown]

NARRATIVE: CASE EVENT DATE: 200707
